FAERS Safety Report 4405257-9 (Version None)
Quarter: 2004Q3

REPORT INFORMATION
  Report Type: 
  Country: None (occurrence: None)
  Receive Date: 20040723
  Receipt Date: 20040714
  Transmission Date: 20050211
  Serious: Yes (Hospitalization)
  Sender: FDA-Public Use
  Company Number: US-BRISTOL-MYERS SQUIBB COMPANY-12641270

PATIENT
  Age: 61 Year

DRUGS (1)
  1. VEPESID [Suspect]
     Route: 048

REACTIONS (1)
  - ADVERSE EVENT [None]
